FAERS Safety Report 7934080-3 (Version None)
Quarter: 2011Q4

REPORT INFORMATION
  Report Type: 
  Country: None (occurrence: None)
  Receive Date: 20111122
  Receipt Date: 20111109
  Transmission Date: 20120403
  Serious: Yes (Death, Life-Threatening)
  Sender: FDA-Public Use
  Company Number: US-MYLANLABS-2011S1023521

PATIENT
  Age: 50 Year
  Sex: Female

DRUGS (2)
  1. BUPROPION HCL [Suspect]
     Indication: OVERDOSE
     Dosage: 150MG XL TABLET
  2. METOPROLOL TARTRATE [Suspect]
     Indication: OVERDOSE
     Dosage: 50MG

REACTIONS (5)
  - OVERDOSE [None]
  - HYPOTENSION [None]
  - MULTI-ORGAN FAILURE [None]
  - CARDIOGENIC SHOCK [None]
  - BRADYCARDIA [None]
